FAERS Safety Report 7020880-3 (Version None)
Quarter: 2010Q3

REPORT INFORMATION
  Report Type: 
  Country: None (occurrence: None)
  Receive Date: 20100929
  Receipt Date: 20100924
  Transmission Date: 20110219
  Serious: Yes (Death, Hospitalization, Other)
  Sender: FDA-Public Use
  Company Number: GB-GENZYME-CLOF-1001151

PATIENT
  Sex: Male

DRUGS (27)
  1. EVOLTRA [Suspect]
     Indication: ACUTE MYELOID LEUKAEMIA
     Dosage: 38 MG, UNK
     Dates: start: 20100819, end: 20100820
  2. GENTAMICIN [Concomitant]
     Indication: PRODUCT USED FOR UNKNOWN INDICATION
     Dosage: 518 MG, QD
     Route: 042
     Dates: start: 20100817, end: 20100817
  3. TAZOCIN [Concomitant]
     Indication: PRODUCT USED FOR UNKNOWN INDICATION
     Dosage: 4.5 G, TID
     Route: 042
     Dates: start: 20100817, end: 20100820
  4. TAZOCIN [Concomitant]
     Dosage: 4.5 G, BID
     Route: 042
     Dates: start: 20100821, end: 20100823
  5. VORICONAZOLE [Concomitant]
     Indication: PRODUCT USED FOR UNKNOWN INDICATION
     Dosage: 400 MG, UNK
     Route: 048
     Dates: start: 20100818, end: 20100819
  6. VORICONAZOLE [Concomitant]
     Dosage: 200 MG, BID
     Route: 048
     Dates: start: 20100819, end: 20100820
  7. VITAMIN K TAB [Concomitant]
     Indication: PRODUCT USED FOR UNKNOWN INDICATION
     Dosage: 10 MG, UNK
     Route: 042
     Dates: start: 20100820, end: 20100820
  8. RASBURICASE [Concomitant]
     Indication: PRODUCT USED FOR UNKNOWN INDICATION
     Dosage: 15 MG, UNK
     Route: 042
     Dates: start: 20100820, end: 20100822
  9. FUROSEMIDE [Concomitant]
     Indication: PRODUCT USED FOR UNKNOWN INDICATION
     Dosage: 80 MG, UNK
     Dates: start: 20100821, end: 20100821
  10. FUROSEMIDE [Concomitant]
     Dosage: UNK
     Route: 048
     Dates: start: 20100822, end: 20100822
  11. ALLOPURINOL [Concomitant]
     Indication: PRODUCT USED FOR UNKNOWN INDICATION
     Dosage: 300 MG, QD
     Route: 048
     Dates: start: 20100818, end: 20100820
  12. FINASTERIDE [Concomitant]
     Indication: PRODUCT USED FOR UNKNOWN INDICATION
     Dosage: 5 MG, QD
     Route: 048
     Dates: start: 20100819, end: 20100822
  13. TAMSULOSIN [Concomitant]
     Indication: PRODUCT USED FOR UNKNOWN INDICATION
     Dosage: 400 MCG, QD
  14. FLUCONAZOLE [Concomitant]
     Indication: PRODUCT USED FOR UNKNOWN INDICATION
     Dosage: 50 MG, QD
     Route: 048
     Dates: start: 20100818, end: 20100819
  15. ACYCLOVIR SODIUM [Concomitant]
     Indication: PRODUCT USED FOR UNKNOWN INDICATION
     Dosage: 200 MG, TID
     Dates: start: 20100818, end: 20100820
  16. ACYCLOVIR SODIUM [Concomitant]
     Dosage: 200 MG, BID
     Dates: start: 20100820, end: 20100823
  17. METOCLOPRAMIDE [Concomitant]
     Indication: PRODUCT USED FOR UNKNOWN INDICATION
     Dosage: 20 MG, UNK
     Route: 048
     Dates: start: 20100819, end: 20100819
  18. PARACETAMOL [Concomitant]
     Indication: PRODUCT USED FOR UNKNOWN INDICATION
     Dosage: 1 G, UNK
     Route: 048
     Dates: start: 20100819, end: 20100819
  19. SODIUM CHLORIDE [Concomitant]
     Indication: PRODUCT USED FOR UNKNOWN INDICATION
     Dosage: 7 L, UNK
     Dates: start: 20100817, end: 20100821
  20. GLUCOSE [Concomitant]
     Indication: PRODUCT USED FOR UNKNOWN INDICATION
     Dosage: 50 ML, BID
     Dates: start: 20100822, end: 20100822
  21. ACTRAPID [Concomitant]
     Indication: PRODUCT USED FOR UNKNOWN INDICATION
     Dosage: 10 U, BID
     Dates: start: 20100822, end: 20100822
  22. SODIUM BICARBONATE [Concomitant]
     Indication: PRODUCT USED FOR UNKNOWN INDICATION
     Dosage: 500 ML, NA
     Dates: start: 20100822, end: 20100823
  23. CALCIUM GLUCONATE [Concomitant]
     Indication: PRODUCT USED FOR UNKNOWN INDICATION
     Dosage: UNK
     Dates: start: 20100822, end: 20100822
  24. ALU-CAP [Concomitant]
     Indication: PRODUCT USED FOR UNKNOWN INDICATION
     Dosage: 2 OTHER, TID
     Dates: start: 20100822, end: 20100823
  25. MORPHINE [Concomitant]
     Indication: PRODUCT USED FOR UNKNOWN INDICATION
     Dosage: 10 MG, UNK
     Dates: start: 20100824, end: 20100824
  26. MIDAZOLAM HCL [Concomitant]
     Indication: PRODUCT USED FOR UNKNOWN INDICATION
     Dosage: 5 MG, UNK
     Dates: start: 20100824, end: 20100824
  27. NORMAL SALINE [Concomitant]
     Indication: PRODUCT USED FOR UNKNOWN INDICATION
     Dosage: 21 ML, UNK
     Dates: start: 20100824, end: 20100824

REACTIONS (3)
  - RENAL FAILURE [None]
  - SEPSIS [None]
  - TUMOUR LYSIS SYNDROME [None]
